FAERS Safety Report 25915385 (Version 1)
Quarter: 2025Q4

REPORT INFORMATION
  Report Type: Spontaneous
  Country: US (occurrence: US)
  Receive Date: 20251013
  Receipt Date: 20251013
  Transmission Date: 20260117
  Serious: No
  Sender: ANI
  Company Number: US-ANIPHARMA-2025-US-034827

PATIENT
  Age: 46 Year
  Sex: Female

DRUGS (7)
  1. CORTICOTROPIN [Suspect]
     Active Substance: CORTICOTROPIN
     Indication: Myositis
     Dosage: 80 UNIT WEEKLY TWICE / 40 UNITS EVERY 72 HOURS
     Route: 058
  2. IRON [Concomitant]
     Active Substance: IRON
  3. FOLIC ACID [Concomitant]
     Active Substance: FOLIC ACID
  4. METHOTREXATE [Concomitant]
     Active Substance: METHOTREXATE
  5. IMMUNE GLOBULIN [Concomitant]
  6. LYRICA [Concomitant]
     Active Substance: PREGABALIN
  7. IBUPROFEN [Concomitant]
     Active Substance: IBUPROFEN

REACTIONS (3)
  - Product dose omission issue [Unknown]
  - Dyspnoea [Unknown]
  - Feeling abnormal [Unknown]

NARRATIVE: CASE EVENT DATE: 20250701
